FAERS Safety Report 6063499-3 (Version None)
Quarter: 2009Q1

REPORT INFORMATION
  Report Type: 
  Country: None (occurrence: None)
  Receive Date: 20090203
  Receipt Date: 20090128
  Transmission Date: 20090719
  Serious: No
  Sender: FDA-Public Use
  Company Number: US-B.I. PHARMACEUTICALS,INC./RIDGEFIELD-2008-BP-17585BP

PATIENT
  Sex: Male

DRUGS (8)
  1. SPIRIVA [Suspect]
     Indication: CHRONIC OBSTRUCTIVE PULMONARY DISEASE
     Dosage: 18MCG
     Route: 055
     Dates: start: 20050601
  2. ALLEGRA [Concomitant]
     Indication: DYSPNOEA
  3. NEXIUM [Concomitant]
     Dosage: 40MG
  4. LIPITOR [Concomitant]
     Dosage: 10MG
  5. METOPROLOL TARTRATE [Concomitant]
     Dosage: 50MG
  6. AMLODIPINE [Concomitant]
     Dosage: 5MG
  7. DIGOXIN [Concomitant]
     Dosage: .0625MG
  8. ASPIRIN [Concomitant]
     Dosage: 325MG

REACTIONS (3)
  - DYSPNOEA [None]
  - EXERCISE TOLERANCE DECREASED [None]
  - GAIT DISTURBANCE [None]
